FAERS Safety Report 9744652 (Version 2)
Quarter: 2014Q1

REPORT INFORMATION
  Report Type: Spontaneous
  Country: FR (occurrence: FR)
  Receive Date: 20131210
  Receipt Date: 20140114
  Transmission Date: 20141002
  Serious: Yes (Hospitalization)
  Sender: FDA-Public Use
  Company Number: FR-ASTRAZENECA-2013SE88900

PATIENT
  Age: 997 Month
  Sex: Female

DRUGS (8)
  1. CRESTOR [Suspect]
     Route: 048
  2. ANAFRANIL [Suspect]
     Route: 048
  3. COTAREG [Suspect]
     Dosage: 80/12.5 MG DAILY
     Route: 048
  4. DESLORATADINE [Suspect]
     Route: 048
  5. DIAMICRON [Suspect]
     Route: 048
  6. ERCEFURYL 200 MG [Suspect]
     Indication: DIVERTICULUM INTESTINAL
     Dosage: 400 MG BID/ 5 DAYS PER MONTH
     Route: 048
     Dates: start: 2004, end: 201310
  7. PLAVIX [Suspect]
     Route: 048
  8. SERESTA [Suspect]
     Route: 048

REACTIONS (3)
  - Lung disorder [Not Recovered/Not Resolved]
  - Fall [Unknown]
  - Urinary tract infection [Unknown]
